FAERS Safety Report 14310108 (Version 1)
Quarter: 2017Q4

REPORT INFORMATION
  Report Type: Spontaneous
  Country: US (occurrence: US)
  Receive Date: 20171220
  Receipt Date: 20171220
  Transmission Date: 20180321
  Serious: No
  Sender: FDA-Public Use
  Company Number: US-BAYER-2017-241458

PATIENT
  Sex: Female

DRUGS (2)
  1. PSYLLIUM HUSK. [Concomitant]
     Active Substance: PSYLLIUM HUSK
  2. MIRALAX [Suspect]
     Active Substance: POLYETHYLENE GLYCOL 3350
     Dosage: UNK
     Route: 065
     Dates: end: 20171211

REACTIONS (2)
  - Nausea [Unknown]
  - Muscular weakness [Unknown]
